FAERS Safety Report 8924892 (Version 2)
Quarter: 2012Q4

REPORT INFORMATION
  Report Type: 
  Country: ES (occurrence: ES)
  Receive Date: 20121126
  Receipt Date: 20121130
  Transmission Date: 20130627
  Serious: Yes (Hospitalization)
  Sender: FDA-Public Use
  Company Number: ES-PFIZER INC-2012294328

PATIENT
  Age: 59 Year
  Sex: Female

DRUGS (8)
  1. ALDACTONE [Suspect]
     Indication: ASCITES
     Dosage: 300 mg, UNK
     Route: 048
     Dates: start: 20120521, end: 20120608
  2. ALDACTONE [Interacting]
     Dosage: 100 mg, UNK
     Route: 048
     Dates: start: 20120608, end: 20120620
  3. SEGURIL [Interacting]
     Indication: ASCITES
     Dosage: 40 mg, 1x/day
     Route: 048
     Dates: start: 20120521, end: 20120608
  4. SEGURIL [Interacting]
     Dosage: 80 mg, 1x/day
     Route: 048
     Dates: start: 20120608, end: 20120620
  5. OMEPRAZOL [Concomitant]
     Dosage: 20 mg, 1x/day
     Route: 048
     Dates: start: 2010
  6. SUMIAL [Concomitant]
     Indication: ACUTE CORONARY SYNDROME
     Dosage: 20 mg, 1x/day
     Route: 048
     Dates: start: 2010
  7. RIFAXIMIN [Concomitant]
     Dosage: 200 mg, 1x/day
     Route: 048
     Dates: start: 201205
  8. SEROXAT ^CIBA-GEIGY^ [Concomitant]
     Dosage: 20 mg, 1x/day
     Route: 048
     Dates: start: 2004

REACTIONS (6)
  - Hyperkalaemia [Recovered/Resolved]
  - Dizziness [Recovered/Resolved]
  - Nausea [Recovered/Resolved]
  - Hyponatraemia [Recovered/Resolved]
  - Malaise [Recovered/Resolved]
  - Drug interaction [Recovered/Resolved]
